FAERS Safety Report 10256291 (Version 1)
Quarter: 2014Q2

REPORT INFORMATION
  Report Type: Spontaneous
  Country: US (occurrence: US)
  Receive Date: 20140624
  Receipt Date: 20140624
  Transmission Date: 20141212
  Serious: Yes (Other)
  Sender: FDA-Public Use
  Company Number: US-ACTAVIS-2014-14083

PATIENT
  Age: 45 Year
  Sex: Female

DRUGS (4)
  1. VANCOMYCIN HCL (WATSON LABORATORIES) [Suspect]
     Indication: SKIN ULCER
     Dosage: 1.4 G, DAILY
  2. VANCOMYCIN HCL (WATSON LABORATORIES) [Suspect]
     Indication: TOE AMPUTATION
     Dosage: 750 MG, BID
  3. VANCOMYCIN HCL (WATSON LABORATORIES) [Suspect]
     Dosage: 1 G, BID
     Route: 042
  4. METFORMIN [Concomitant]
     Indication: TYPE 2 DIABETES MELLITUS
     Dosage: UNKNOWN
     Route: 065

REACTIONS (1)
  - Tubulointerstitial nephritis [Recovering/Resolving]
